FAERS Safety Report 5508968-7 (Version None)
Quarter: 2007Q4

REPORT INFORMATION
  Report Type: 
  Country: None (occurrence: None)
  Receive Date: 20071031
  Receipt Date: 20070814
  Transmission Date: 20080405
  Serious: No
  Sender: FDA-Public Use
  Company Number: 2007PV033297

PATIENT
  Age: 58 Year
  Sex: Male

DRUGS (1)
  1. SYMLIN [Suspect]
     Indication: DRUG USE FOR UNKNOWN INDICATION
     Dosage: 10 MCG;TID;SC
     Route: 058
     Dates: start: 20070813

REACTIONS (3)
  - BALANCE DISORDER [None]
  - DIZZINESS [None]
  - VERTIGO [None]
